FAERS Safety Report 23616005 (Version 4)
Quarter: 2024Q2

REPORT INFORMATION
  Report Type: Spontaneous
  Country: US (occurrence: US)
  Receive Date: 20240311
  Receipt Date: 20240411
  Transmission Date: 20240716
  Serious: Yes (Hospitalization, Other)
  Sender: FDA-Public Use
  Company Number: None

PATIENT
  Age: 60 Year
  Sex: Male
  Weight: 84 kg

DRUGS (11)
  1. TACROLIMUS [Interacting]
     Active Substance: TACROLIMUS
     Indication: Immunosuppressant drug therapy
     Dosage: UNK
     Route: 065
  2. TACROLIMUS [Interacting]
     Active Substance: TACROLIMUS
     Dosage: UNK (RESUMPTION DOSE)
     Route: 065
  3. MYCOPHENOLATE MOFETIL [Suspect]
     Active Substance: MYCOPHENOLATE MOFETIL
     Indication: Immunosuppressant drug therapy
     Dosage: UNK
     Route: 065
  4. ITRACONAZOLE [Interacting]
     Active Substance: ITRACONAZOLE
     Indication: Antifungal prophylaxis
     Dosage: UNK
     Route: 065
  5. NIRMATRELVIR [Interacting]
     Active Substance: NIRMATRELVIR
     Indication: COVID-19
     Dosage: 300 MILLIGRAM
     Route: 065
  6. NIRMATRELVIR [Interacting]
     Active Substance: NIRMATRELVIR
     Dosage: 2 DOSAGE FORM (TOTAL)
     Route: 065
  7. PHENYTOIN [Interacting]
     Active Substance: PHENYTOIN
     Indication: Toxicity to various agents
     Dosage: 100 MILLIGRAM, TID (THREE TIMES A DAY, BY MOUTH)
     Route: 048
  8. PHENYTOIN [Interacting]
     Active Substance: PHENYTOIN
     Indication: Immunosuppressant drug level increased
  9. RITONAVIR [Interacting]
     Active Substance: RITONAVIR
     Indication: COVID-19
     Dosage: 100 MILLIGRAM
     Route: 065
  10. RITONAVIR [Interacting]
     Active Substance: RITONAVIR
     Dosage: 2 DOSAGE FORM (TOTAL)
     Route: 065
  11. WARFARIN [Interacting]
     Active Substance: WARFARIN
     Indication: Product used for unknown indication
     Dosage: UNK
     Route: 065

REACTIONS (6)
  - Drug interaction [Unknown]
  - Immunosuppressant drug level increased [Recovered/Resolved]
  - Toxicity to various agents [Recovered/Resolved]
  - Acute kidney injury [Recovered/Resolved]
  - Hyperkalaemia [Unknown]
  - COVID-19 [Unknown]
